FAERS Safety Report 21192827 (Version 2)
Quarter: 2022Q3

REPORT INFORMATION
  Report Type: Report from Study
  Country: US (occurrence: US)
  Receive Date: 20220810
  Receipt Date: 20220916
  Transmission Date: 20221026
  Serious: Yes (Other)
  Sender: FDA-Public Use
  Company Number: US-GILEAD-2022-0592691

PATIENT
  Age: 17 Year
  Sex: Female

DRUGS (2)
  1. AZTREONAM LYSINE [Suspect]
     Active Substance: AZTREONAM LYSINE
     Indication: Acute respiratory failure
     Dosage: UNK
     Route: 065
     Dates: start: 20220719, end: 20220805
  2. AZTREONAM LYSINE [Suspect]
     Active Substance: AZTREONAM LYSINE
     Indication: Pneumonia

REACTIONS (2)
  - Seizure [Unknown]
  - Off label use [Recovered/Resolved]
